FAERS Safety Report 7734742 (Version 4)
Quarter: 2014Q2

REPORT INFORMATION
  Report Type: Spontaneous
  Country: US (occurrence: US)
  Receive Date: 20101223
  Receipt Date: 20140509
  Transmission Date: 20141212
  Serious: Yes (Life-Threatening, Hospitalization, Other)
  Sender: FDA-Public Use
  Company Number: US-BAYER-2010-004842

PATIENT
  Age: 36 Year
  Sex: Female
  Weight: 110.66 kg

DRUGS (21)
  1. YAZ [Suspect]
     Indication: PRODUCT USED FOR UNKNOWN INDICATION
     Dosage: UNK
     Dates: start: 2008, end: 200912
  2. YAZ [Suspect]
     Indication: MENOMETRORRHAGIA
  3. YASMIN [Suspect]
     Indication: PRODUCT USED FOR UNKNOWN INDICATION
     Dosage: UNK
     Dates: start: 2008, end: 200912
  4. LORTAB [Concomitant]
  5. GLUCOPHAGE [Concomitant]
     Dosage: 500 MG, UNK
  6. HUMALOG [Concomitant]
  7. LEVEMIR [Concomitant]
     Dosage: 55 U, HS
  8. CELEBREX [Concomitant]
  9. VERELAN [Concomitant]
     Dosage: 1 EVERY HS
  10. MECLIZINE [Concomitant]
  11. FIORINAL CODEINA [Concomitant]
  12. PROVENTIL [Concomitant]
  13. LEVAQUIN [Concomitant]
  14. FLAGYL [Concomitant]
  15. NAPROSYN [Concomitant]
  16. SYNALGOS [Concomitant]
  17. ZANAFLEX [Concomitant]
  18. LISINOPRIL [Concomitant]
  19. POTASSIUM CHLORIDE [Concomitant]
  20. SKELAXIN [Concomitant]
  21. PRAVACHOL [Concomitant]

REACTIONS (7)
  - Pulmonary embolism [None]
  - Pulmonary embolism [None]
  - Deep vein thrombosis [Recovered/Resolved]
  - Abdominal pain [None]
  - Anxiety [None]
  - Emotional distress [None]
  - Cholelithiasis [None]
